FAERS Safety Report 26023491 (Version 2)
Quarter: 2025Q4

REPORT INFORMATION
  Report Type: Report from Study
  Country: US (occurrence: US)
  Receive Date: 20251111
  Receipt Date: 20251207
  Transmission Date: 20260118
  Serious: Yes (Other)
  Sender: ABBVIE
  Company Number: US-ABBVIE-6537014

PATIENT
  Age: 56 Year
  Sex: Female

DRUGS (1)
  1. SKYRIZI [Suspect]
     Active Substance: RISANKIZUMAB-RZAA
     Indication: Crohn^s disease
     Route: 058
     Dates: start: 20250403

REACTIONS (4)
  - Hormone level abnormal [Recovering/Resolving]
  - Dyschezia [Recovering/Resolving]
  - Anorectal swelling [Recovering/Resolving]
  - Intestinal operation [Recovering/Resolving]

NARRATIVE: CASE EVENT DATE: 20250101
